FAERS Safety Report 9571238 (Version 1)
Quarter: 2013Q4

REPORT INFORMATION
  Report Type: Spontaneous
  Country: US (occurrence: US)
  Receive Date: 20131001
  Receipt Date: 20131001
  Transmission Date: 20140711
  Serious: No
  Sender: FDA-Public Use
  Company Number: US-BAYER-2013-116154

PATIENT
  Sex: Female

DRUGS (1)
  1. GADAVIST [Suspect]
     Dosage: 5 ML, ONCE
     Route: 042
     Dates: start: 20130923, end: 20130923

REACTIONS (1)
  - Nausea [Recovered/Resolved]
